FAERS Safety Report 21967491 (Version 2)
Quarter: 2023Q1

REPORT INFORMATION
  Report Type: Spontaneous
  Country: US (occurrence: US)
  Receive Date: 20230208
  Receipt Date: 20230310
  Transmission Date: 20230417
  Serious: Yes (Other)
  Sender: FDA-Public Use
  Company Number: US-MYLANLABS-2023M1013375

PATIENT
  Age: 16 Year
  Sex: Male

DRUGS (3)
  1. SERTRALINE [Suspect]
     Active Substance: SERTRALINE HYDROCHLORIDE
     Indication: Generalised anxiety disorder
     Dosage: 50 MILLIGRAM, QD (EVERY MORNING)
     Route: 065
  2. SERTRALINE [Suspect]
     Active Substance: SERTRALINE HYDROCHLORIDE
     Dosage: 25 MILLIGRAM, QD (EVERY MORNING)
     Route: 065
  3. SERTRALINE [Suspect]
     Active Substance: SERTRALINE HYDROCHLORIDE
     Dosage: 25 MILLIGRAM, QD (REDUCED TO 25MG)
     Route: 065

REACTIONS (4)
  - Rebound effect [Recovering/Resolving]
  - Anxiety [Recovering/Resolving]
  - Condition aggravated [Recovering/Resolving]
  - Urinary retention [Recovering/Resolving]
